FAERS Safety Report 4282838-7 (Version None)
Quarter: 2004Q1

REPORT INFORMATION
  Report Type: 
  Country: None (occurrence: None)
  Receive Date: 20040130
  Receipt Date: 20030528
  Transmission Date: 20041129
  Serious: No
  Sender: FDA-Public Use
  Company Number: US-BRISTOL-MYERS SQUIBB COMPANY-12286415

PATIENT
  Age: 39 Year
  Sex: Female
  Weight: 73 kg

DRUGS (7)
  1. SERZONE [Suspect]
     Indication: MENTAL DISORDER
     Dosage: 100 MG DAILY IN THE EVENING,MEDS NOT TAKEN FOR 1 WK AS OF 23-MAY-03,THEN RESTARTED
     Route: 048
  2. EFFEXOR [Suspect]
  3. NEURONTIN [Suspect]
  4. REQUIP [Suspect]
  5. FLEXERIL [Suspect]
  6. ADDERALL 10 [Suspect]
     Dosage: ^ADDERALL XR^
  7. VITAMIN B-12 [Concomitant]
     Route: 051

REACTIONS (1)
  - DRUG WITHDRAWAL SYNDROME [None]
